FAERS Safety Report 16782968 (Version 4)
Quarter: 2020Q1

REPORT INFORMATION
  Report Type: Report from Study
  Country: US (occurrence: US)
  Receive Date: 20190906
  Receipt Date: 20200325
  Transmission Date: 20200409
  Serious: No
  Sender: FDA-Public Use
  Company Number: PHEH2019US036881

PATIENT
  Age: 54 Year
  Sex: Female

DRUGS (2)
  1. COSENTYX [Suspect]
     Active Substance: SECUKINUMAB
     Route: 058
  2. COSENTYX [Suspect]
     Active Substance: SECUKINUMAB
     Indication: PSORIASIS
     Dosage: 300 MG, Q4W
     Route: 058
     Dates: start: 20190731

REACTIONS (8)
  - Drug ineffective [Unknown]
  - Contusion [Recovering/Resolving]
  - Injection site haemorrhage [Unknown]
  - Nasopharyngitis [Recovering/Resolving]
  - Cough [Unknown]
  - Therapeutic product effect incomplete [Unknown]
  - Viral infection [Unknown]
  - Dysphonia [Unknown]

NARRATIVE: CASE EVENT DATE: 20190925
